FAERS Safety Report 9083236 (Version 1)
Quarter: 2013Q1

REPORT INFORMATION
  Report Type: Report from Study
  Country: US (occurrence: US)
  Receive Date: 20130130
  Receipt Date: 20130130
  Transmission Date: 20140127
  Serious: Yes (Hospitalization)
  Sender: FDA-Public Use
  Company Number: US-ABBOTT-12P-163-0952474-00

PATIENT
  Age: 63 None
  Sex: Male

DRUGS (2)
  1. HUMIRA 40 MG/ 0.8 ML PRE-FILLED SYRINGE [Suspect]
     Indication: RHEUMATOID ARTHRITIS
     Dates: start: 2007
  2. PLAVIX [Suspect]
     Indication: CORONARY ARTERY OCCLUSION
     Dates: start: 20120513

REACTIONS (2)
  - Musculoskeletal pain [Recovered/Resolved]
  - Injection site bruising [Not Recovered/Not Resolved]
